FAERS Safety Report 4617984-9 (Version None)
Quarter: 2005Q1

REPORT INFORMATION
  Report Type: 
  Country: None (occurrence: None)
  Receive Date: 20050322
  Receipt Date: 20050310
  Transmission Date: 20050727
  Serious: Yes (Hospitalization, Other)
  Sender: FDA-Public Use
  Company Number: TPA2005A00291

PATIENT
  Age: 66 Year
  Sex: Female
  Weight: 121.1104 kg

DRUGS (17)
  1. ACTOS [Suspect]
     Indication: DIABETES MELLITUS NON-INSULIN-DEPENDENT
     Dosage: 45 MG, 1 IN 1 D, PER ORAL
     Route: 048
  2. PREDNISONE [Suspect]
     Indication: CROHN'S DISEASE
     Dates: start: 20050207
  3. IMURAN [Suspect]
  4. HUMULIN (NOVOLIN 20/80) (INJECTION) [Concomitant]
  5. BETHANECHOL (BETHANECHOL) (25 MILLIGRAM) [Concomitant]
  6. ATENOLOL [Concomitant]
  7. FUROSEMIDE (FUROSEMIDE) (40 MILLIGRAM) [Concomitant]
  8. KAY CIEL (POTASSIUM CHLORIDE) (20 MILLIEQUIVALENTS) [Concomitant]
  9. ASPIRIN (ACETYLSALICYLIC ACID) (325 MILLIGRAM) [Concomitant]
  10. XANAX (ALPRAZOLAM) (1 MILLIGRAM) [Concomitant]
  11. AMBIEN (ZOLPIDEM TARTRATE) (10 MILLIGRAM) [Concomitant]
  12. HYDROCODONE/APAP (PROCET) [Concomitant]
  13. CALCIUM + D (CALCIUM WITH VITAMIN D) (600 MILLIGRAM) [Concomitant]
  14. LANTUS [Concomitant]
  15. LEXAPRO (ESCITALOPRAM OXALATE) (10 MILLIGRAM) [Concomitant]
  16. REMICADE (INFLIXIMAB) (INJECTION) [Concomitant]
  17. LIPITOR [Concomitant]

REACTIONS (10)
  - ANURIA [None]
  - BLADDER SPASM [None]
  - BLOOD GLUCOSE INCREASED [None]
  - CATHETER RELATED COMPLICATION [None]
  - CROHN'S DISEASE [None]
  - GENERALISED OEDEMA [None]
  - HAEMORRHAGE URINARY TRACT [None]
  - PERICARDIAL EFFUSION [None]
  - PNEUMONITIS [None]
  - PULMONARY OEDEMA [None]
